FAERS Safety Report 4653726-9 (Version None)
Quarter: 2005Q2

REPORT INFORMATION
  Report Type: 
  Country: None (occurrence: None)
  Receive Date: 20050505
  Receipt Date: 20050422
  Transmission Date: 20051028
  Serious: Yes (Death, Hospitalization)
  Sender: FDA-Public Use
  Company Number: IT-BRISTOL-MYERS SQUIBB COMPANY-12956868

PATIENT
  Age: 55 Year
  Sex: Female

DRUGS (7)
  1. ERBITUX [Suspect]
     Indication: COLORECTAL CANCER METASTATIC
     Route: 041
     Dates: start: 20050221, end: 20050329
  2. IRINOTECAN [Suspect]
     Indication: COLORECTAL CANCER METASTATIC
     Route: 042
     Dates: start: 20041116
  3. FLUOROURACIL [Suspect]
     Indication: COLORECTAL CANCER METASTATIC
     Route: 042
     Dates: start: 20041116
  4. FENTANYL [Concomitant]
     Dates: start: 20050101
  5. LACTOBACILLUS ACIDOPHILUS [Concomitant]
  6. LANSOPRAZOLE [Concomitant]
     Dates: start: 20040101
  7. NADROPARINE [Concomitant]
     Dates: start: 20040601

REACTIONS (1)
  - TOXIC EPIDERMAL NECROLYSIS [None]
